FAERS Safety Report 6127752-7 (Version None)
Quarter: 2009Q1

REPORT INFORMATION
  Report Type: 
  Country: None (occurrence: None)
  Receive Date: 20090323
  Receipt Date: 20090319
  Transmission Date: 20090719
  Serious: Yes (Life-Threatening)
  Sender: FDA-Public Use
  Company Number: JP-NOVOPROD-285372

PATIENT
  Age: 89 Year
  Sex: Male
  Weight: 37 kg

DRUGS (1)
  1. LEVEMIR [Suspect]
     Indication: TYPE 2 DIABETES MELLITUS
     Dosage: 2 IU, QD
     Route: 058
     Dates: end: 20090316

REACTIONS (2)
  - HYPOGLYCAEMIA [None]
  - PNEUMONIA [None]
